FAERS Safety Report 5558935-2 (Version None)
Quarter: 2007Q4

REPORT INFORMATION
  Report Type: 
  Country: None (occurrence: None)
  Receive Date: 20071214
  Receipt Date: 20070910
  Transmission Date: 20080405
  Serious: No
  Sender: FDA-Public Use
  Company Number: US-ABBOTT-07P-163-0416900-00

PATIENT
  Sex: Female
  Weight: 59.02 kg

DRUGS (5)
  1. HUMIRA [Suspect]
     Indication: RHEUMATOID ARTHRITIS
     Dosage: SYRINGE
     Route: 058
     Dates: start: 20060901, end: 20070801
  2. HUMIRA [Suspect]
     Dosage: PEN
     Route: 058
     Dates: start: 20070801
  3. ANTI-INFLAMMATORY [Concomitant]
     Indication: ANTIINFLAMMATORY THERAPY
     Route: 048
  4. CHOLESTEROL MED [Concomitant]
     Indication: BLOOD CHOLESTEROL
     Route: 048
  5. HYPERTENSION MED [Concomitant]
     Indication: HYPERTENSION
     Route: 048

REACTIONS (1)
  - UNDERDOSE [None]
